FAERS Safety Report 9112649 (Version 1)
Quarter: 2013Q1

REPORT INFORMATION
  Report Type: Spontaneous
  Country: US (occurrence: US)
  Receive Date: 20130211
  Receipt Date: 20130211
  Transmission Date: 20140127
  Serious: No
  Sender: FDA-Public Use
  Company Number: US-BAYER-2013-012081

PATIENT
  Age: 24 Year
  Sex: Male
  Weight: 91 kg

DRUGS (1)
  1. ALEVE CAPLET/TABLET,MIDOL EXTENDED RELIEF CAPLET [Suspect]
     Indication: HEADACHE
     Dosage: UNK UNK, PRN
     Route: 048

REACTIONS (5)
  - Incorrect dose administered [None]
  - Drug administration error [None]
  - Oesophageal pain [Not Recovered/Not Resolved]
  - Throat irritation [Recovered/Resolved]
  - Oropharyngeal pain [None]
